FAERS Safety Report 24833034 (Version 1)
Quarter: 2025Q1

REPORT INFORMATION
  Report Type: Report from Study
  Country: US (occurrence: US)
  Receive Date: 20250111
  Receipt Date: 20250111
  Transmission Date: 20250408
  Serious: Yes (Hospitalization)
  Sender: AMGEN
  Company Number: US-AMGEN-USASL2025001491

PATIENT
  Sex: Female
  Weight: 9 kg

DRUGS (2)
  1. TEPEZZA [Suspect]
     Active Substance: TEPROTUMUMAB-TRBW
     Indication: Toxic goitre
     Dosage: UNK, Q3WK
     Route: 040
     Dates: start: 20240730
  2. TEPEZZA [Suspect]
     Active Substance: TEPROTUMUMAB-TRBW
     Dosage: UNK, Q3WK, (SEVENTH INFUSION)
     Route: 040
     Dates: start: 20240730, end: 20241202

REACTIONS (4)
  - Confusional state [Unknown]
  - Panic disorder [Not Recovered/Not Resolved]
  - Anxiety [Not Recovered/Not Resolved]
  - Weight decreased [Unknown]
